FAERS Safety Report 4342272-8 (Version None)
Quarter: 2004Q2

REPORT INFORMATION
  Report Type: 
  Country: None (occurrence: None)
  Receive Date: 20040415
  Receipt Date: 20040409
  Transmission Date: 20050107
  Serious: No
  Sender: FDA-Public Use
  Company Number: 2004UW07213

PATIENT
  Age: 76 Year
  Sex: Male
  Weight: 127.0072 kg

DRUGS (3)
  1. CRESTOR [Suspect]
     Indication: BLOOD CHOLESTEROL INCREASED
     Dosage: 20 MG DAILY PO
     Route: 048
     Dates: start: 20040301
  2. ALTACE [Concomitant]
  3. COUMADIN [Concomitant]

REACTIONS (1)
  - DEAFNESS [None]
